FAERS Safety Report 6624845-2 (Version None)
Quarter: 2010Q1

REPORT INFORMATION
  Report Type: 
  Country: None (occurrence: None)
  Receive Date: 20100305
  Receipt Date: 20100218
  Transmission Date: 20100710
  Serious: Yes (Hospitalization)
  Sender: FDA-Public Use
  Company Number: AUR-APL-2010-00302

PATIENT
  Age: 93 Year
  Sex: Female
  Weight: 45.8133 kg

DRUGS (10)
  1. METOPROLOL [Suspect]
     Dosage: 50MG, DAILY, ORAL
     Route: 048
     Dates: start: 19960101, end: 20091203
  2. DIMEBON 10MG TABLET [Suspect]
     Indication: DEMENTIA ALZHEIMER'S TYPE
     Dosage: 10MG, TID, ORAL
     Route: 048
     Dates: start: 20091110, end: 20091114
  3. ARICEPT [Concomitant]
  4. SYNTHROID [Concomitant]
  5. PREVACID [Concomitant]
  6. SIMVASTATIN [Concomitant]
  7. NITROGLYCERIN [Concomitant]
  8. LORAZEPAM [Concomitant]
  9. LUNESTA [Concomitant]
  10. ASPIRIN [Concomitant]

REACTIONS (5)
  - BRADYCARDIA [None]
  - FALL [None]
  - HAEMODYNAMIC INSTABILITY [None]
  - HEART RATE INCREASED [None]
  - HIP FRACTURE [None]
